FAERS Safety Report 19571273 (Version 4)
Quarter: 2021Q4

REPORT INFORMATION
  Report Type: Report from Study
  Country: US (occurrence: US)
  Receive Date: 20210716
  Receipt Date: 20211126
  Transmission Date: 20220304
  Serious: Yes (Other)
  Sender: FDA-Public Use
  Company Number: US-TAKEDA-2021TUS042787

PATIENT
  Sex: Male
  Weight: 75 kg

DRUGS (24)
  1. HUMAN IMMUNOGLOBULIN G [Suspect]
     Active Substance: HUMAN IMMUNOGLOBULIN G
     Indication: Immunodeficiency common variable
     Dosage: 30 GRAM, Q3MONTHS
     Route: 042
     Dates: start: 20190607
  2. HUMAN IMMUNOGLOBULIN G [Suspect]
     Active Substance: HUMAN IMMUNOGLOBULIN G
     Indication: Plasma cell myeloma
  3. HUMAN IMMUNOGLOBULIN G [Suspect]
     Active Substance: HUMAN IMMUNOGLOBULIN G
     Indication: Malignant neoplasm of unknown primary site
  4. REVLIMID [Concomitant]
     Active Substance: LENALIDOMIDE
  5. POTASSIUM PHOSPHATE, MONOBASIC [Concomitant]
     Active Substance: POTASSIUM PHOSPHATE, MONOBASIC
  6. SPIRONOLACTONE [Concomitant]
     Active Substance: SPIRONOLACTONE
  7. LISINOPRIL [Concomitant]
     Active Substance: LISINOPRIL
  8. ALLOPURINOL [Concomitant]
     Active Substance: ALLOPURINOL
  9. VITAMIN D3 [Concomitant]
     Active Substance: CHOLECALCIFEROL
  10. VITAMIN B1 [Concomitant]
     Active Substance: THIAMINE HYDROCHLORIDE
  11. ACYCLOVIR [Concomitant]
     Active Substance: ACYCLOVIR
  12. FERROUS FUMARATE [Concomitant]
     Active Substance: FERROUS FUMARATE
  13. VITAMINS [Concomitant]
     Active Substance: VITAMINS
  14. REGLAN [Concomitant]
     Active Substance: METOCLOPRAMIDE HYDROCHLORIDE
  15. MUCINEX [Concomitant]
     Active Substance: GUAIFENESIN
  16. CALCIUM [Concomitant]
     Active Substance: CALCIUM
  17. CULTURELLE [Concomitant]
     Active Substance: LACTOBACILLUS RHAMNOSUS
  18. OMEPRAZOLE [Concomitant]
     Active Substance: OMEPRAZOLE
  19. LORAZEPAM [Concomitant]
     Active Substance: LORAZEPAM
  20. FINASTERIDE [Concomitant]
     Active Substance: FINASTERIDE
  21. TAMSULOSIN [Concomitant]
     Active Substance: TAMSULOSIN
  22. VITAMIN C [Concomitant]
     Active Substance: ASCORBIC ACID
  23. ASPIRIN [Concomitant]
     Active Substance: ASPIRIN
  24. POTASSIUM [Concomitant]
     Active Substance: POTASSIUM

REACTIONS (3)
  - Squamous cell carcinoma [Unknown]
  - Urinary tract infection [Unknown]
  - Fatigue [Unknown]
